FAERS Safety Report 7510516-7 (Version None)
Quarter: 2011Q2

REPORT INFORMATION
  Report Type: 
  Country: None (occurrence: None)
  Receive Date: 20110529
  Receipt Date: 20110523
  Transmission Date: 20111010
  Serious: Yes (Hospitalization)
  Sender: FDA-Public Use
  Company Number: DE-BRISTOL-MYERS SQUIBB COMPANY-15769672

PATIENT
  Age: 70 Year
  Sex: Male

DRUGS (14)
  1. CISPLATIN [Suspect]
     Indication: NON-SMALL CELL LUNG CANCER
     Dosage: RECENT INF:3MAY2011
     Route: 042
     Dates: start: 20110412
  2. SOTALOL HCL [Concomitant]
     Indication: HYPOTHYROIDISM
     Dates: start: 20010101
  3. CALCIUM EFFERVESCENT TABS [Concomitant]
     Indication: HYPOTHYROIDISM
     Dates: start: 20010101
  4. EMEND [Concomitant]
     Indication: PROPHYLAXIS
     Dates: start: 20110503, end: 20110508
  5. DEXAMETHASONE [Concomitant]
     Dates: start: 20110503, end: 20110508
  6. LORAZEPAM [Concomitant]
     Indication: RESTLESSNESS
     Dates: start: 20110302
  7. SPIRIVA [Concomitant]
     Indication: DYSPNOEA
     Dates: start: 20110406
  8. FOLSAURE [Concomitant]
     Dates: start: 20110406
  9. POTASSIUM CL + SODIUM CL [Concomitant]
     Dates: start: 20110503, end: 20110503
  10. MAGNESIUM SULFATE [Concomitant]
  11. ALIMTA [Suspect]
     Indication: NON-SMALL CELL LUNG CANCER
     Dosage: RECENT INF:3MAY2011
     Route: 042
     Dates: start: 20110412
  12. EUTHYROX [Concomitant]
     Indication: HYPOTHYROIDISM
     Dates: start: 20010101
  13. ONDANSETRON [Concomitant]
  14. DIGIMERCK [Concomitant]
     Indication: HYPERTENSION
     Dates: start: 20080101

REACTIONS (1)
  - FALL [None]
